FAERS Safety Report 9198442 (Version 1)
Quarter: 2013Q1

REPORT INFORMATION
  Report Type: Spontaneous
  Country: US (occurrence: None)
  Receive Date: 20130327
  Receipt Date: 20130327
  Transmission Date: 20140127
  Serious: Yes (Other)
  Sender: FDA-Public Use
  Company Number: None

PATIENT
  Age: 53 Year
  Sex: Female
  Weight: 68.04 kg

DRUGS (1)
  1. FEXOFENADINE HCL [Suspect]
     Indication: SEASONAL ALLERGY
     Dosage: 1  1  PO
     Route: 048
     Dates: start: 20130320, end: 20130320

REACTIONS (2)
  - Vomiting [None]
  - Product quality issue [None]
